FAERS Safety Report 21574937 (Version 1)
Quarter: 2022Q4

REPORT INFORMATION
  Report Type: Spontaneous
  Country: CA (occurrence: CA)
  Receive Date: 20221110
  Receipt Date: 20221110
  Transmission Date: 20230113
  Serious: Yes (Other)
  Sender: FDA-Public Use
  Company Number: CA-BAXTER-2022BAX023793

PATIENT
  Age: 67 Year
  Sex: Female

DRUGS (5)
  1. CEFTRIAXONE [Suspect]
     Active Substance: CEFTRIAXONE
     Indication: Alpha haemolytic streptococcal infection
     Dosage: 1 GRAM, EVERY 1 DAYS
     Route: 065
  2. VANCOMYCIN [Suspect]
     Active Substance: VANCOMYCIN
     Indication: Alpha haemolytic streptococcal infection
     Dosage: 1 MILLIGRAM (FREQUENCY NOT REPORTED)
     Route: 042
  3. MEROPENEM [Suspect]
     Active Substance: MEROPENEM
     Indication: Alpha haemolytic streptococcal infection
     Dosage: 2 GRAM, 3 EVERY 1 DAYS (DOSAGE FORM: POWDER FOR SOLUTION INTRAVENOUS)
     Route: 042
  4. DEXAMETHASONE [Suspect]
     Active Substance: DEXAMETHASONE
     Indication: Alpha haemolytic streptococcal infection
     Route: 065
  5. CEFTAZIDIME [Suspect]
     Active Substance: CEFTAZIDIME
     Indication: Alpha haemolytic streptococcal infection
     Dosage: 2.25 MILLIGRAM, EVERY 1 DAYS (DOSAGE FORM: POWDER FOR SOLUTION))
     Route: 065

REACTIONS (1)
  - Drug ineffective [Unknown]
